FAERS Safety Report 23341706 (Version 1)
Quarter: 2023Q4

REPORT INFORMATION
  Report Type: Report from Study
  Country: BR (occurrence: BR)
  Receive Date: 20231227
  Receipt Date: 20231227
  Transmission Date: 20240109
  Serious: Yes (Hospitalization)
  Sender: FDA-Public Use
  Company Number: BR-BAYER-2023A167918

PATIENT
  Age: 69 Year
  Sex: Female

DRUGS (11)
  1. NEXAVAR [Suspect]
     Active Substance: SORAFENIB
     Indication: Hepatocellular carcinoma
     Dosage: 200 MG, BID
     Dates: start: 20231006, end: 20231114
  2. ATENOLOL [Concomitant]
     Active Substance: ATENOLOL
     Indication: Hypertension
     Dosage: 1 TABLET OF 50 MG A DAY
     Dates: start: 2022
  3. LOSARTAN [Concomitant]
     Active Substance: LOSARTAN
     Indication: Hypertension
     Dosage: 1 TABLET A DAY
  4. MAGNESIUM [Concomitant]
     Active Substance: MAGNESIUM
     Indication: Mineral supplementation
     Dosage: 1 TABLET EVERY 12 HOURS
     Dates: start: 2022
  5. CALCIUM [Concomitant]
     Active Substance: CALCIUM
     Indication: Mineral supplementation
     Dosage: 1 TABLET A DAY
  6. VITAMIN B12 [Concomitant]
     Active Substance: CYANOCOBALAMIN
     Indication: Vitamin supplementation
     Dosage: 0.5 ML/DAY
     Dates: start: 2021
  7. VITAMIN D NOS [Concomitant]
     Active Substance: VITAMIN D NOS
     Indication: Nutritional supplementation
     Dosage: 14 DROPS A WEEK
  8. AMIODARONE [Concomitant]
     Active Substance: AMIODARONE
     Indication: Arrhythmia
     Dosage: UNK
  9. ONDANSETRON [Concomitant]
     Active Substance: ONDANSETRON
     Indication: Nausea
     Dosage: 1 TABLET EVERY 8 HOURS
     Dates: start: 2023
  10. DIMENHYDRINATE [Concomitant]
     Active Substance: DIMENHYDRINATE
     Indication: Vomiting
     Dosage: ONLY IF NECESSARY, 1 TABLET EVERY 8 HOURS
     Dates: start: 202310
  11. METOCLOPRAMIDE [Concomitant]
     Active Substance: METOCLOPRAMIDE
     Indication: Nausea
     Dosage: 1 TABLET EVERY 8 HOURS
     Dates: start: 202310

REACTIONS (13)
  - Enterocolitis infectious [Recovered/Resolved]
  - Toxicity to various agents [Recovered/Resolved]
  - Haemorrhage [Recovered/Resolved]
  - Ageusia [Not Recovered/Not Resolved]
  - Diarrhoea [Not Recovered/Not Resolved]
  - Nausea [Recovering/Resolving]
  - Decreased appetite [Not Recovered/Not Resolved]
  - Asthenia [Recovering/Resolving]
  - Off label use [None]
  - Decreased appetite [Not Recovered/Not Resolved]
  - Vomiting [Recovering/Resolving]
  - Anaemia [Not Recovered/Not Resolved]
  - Asthenia [Not Recovered/Not Resolved]

NARRATIVE: CASE EVENT DATE: 20231001
